FAERS Safety Report 7211673-2 (Version None)
Quarter: 2011Q1

REPORT INFORMATION
  Report Type: 
  Country: None (occurrence: None)
  Receive Date: 20110105
  Receipt Date: 20101229
  Transmission Date: 20110831
  Serious: Yes (Hospitalization)
  Sender: FDA-Public Use
  Company Number: US-ASTRAZENECA-2010SE61209

PATIENT
  Age: 71 Year
  Sex: Male
  Weight: 93 kg

DRUGS (3)
  1. SYMBICORT [Suspect]
     Indication: CHRONIC OBSTRUCTIVE PULMONARY DISEASE
     Dosage: 160/4.5 MCG, TWO PUFFS, TWICE DAILY
     Route: 055
     Dates: start: 20100901
  2. CHOLESTEROL MEDICATION UNSURE OF NAMES [Concomitant]
  3. HIGH BLOOD PRESSURE MEDICATION UNSURE OFNAMES [Concomitant]

REACTIONS (1)
  - HAEMOGLOBIN DECREASED [None]
